FAERS Safety Report 10552714 (Version 4)
Quarter: 2014Q4

REPORT INFORMATION
  Report Type: Spontaneous
  Country: JP (occurrence: JP)
  Receive Date: 20141029
  Receipt Date: 20141222
  Transmission Date: 20150529
  Serious: Yes (Life-Threatening, Other)
  Sender: FDA-Public Use
  Company Number: JP-PFIZER INC-2014296093

PATIENT
  Age: 63 Year
  Sex: Female

DRUGS (2)
  1. KN SOL. 3B [Concomitant]
     Dosage: 500 ML, 1X/DAY
     Route: 041
     Dates: start: 20141026, end: 20141026
  2. SOLU-CORTEF [Suspect]
     Active Substance: HYDROCORTISONE SODIUM SUCCINATE
     Indication: HYPERSENSITIVITY
     Dosage: 200 MG, 1X/DAY
     Route: 041
     Dates: start: 20141026, end: 20141026

REACTIONS (2)
  - Anaphylactic shock [Recovered/Resolved]
  - Dermatitis allergic [Recovered/Resolved]

NARRATIVE: CASE EVENT DATE: 20141026
